FAERS Safety Report 25445656 (Version 2)
Quarter: 2025Q3

REPORT INFORMATION
  Report Type: Spontaneous
  Country: US (occurrence: US)
  Receive Date: 20250617
  Receipt Date: 20250927
  Transmission Date: 20251021
  Serious: Yes (Other)
  Sender: SANOFI AVENTIS
  Company Number: US-SA-2025SA171104

PATIENT
  Age: 32 Year
  Sex: Male

DRUGS (3)
  1. DUPIXENT [Suspect]
     Active Substance: DUPILUMAB
     Indication: Eosinophilic oesophagitis
     Dosage: 300 MG, QW
     Route: 058
     Dates: start: 20250430
  2. VITAMINS [Concomitant]
     Active Substance: VITAMINS
     Route: 048
  3. EPIPEN [Concomitant]
     Active Substance: EPINEPHRINE
     Dates: start: 20240418

REACTIONS (1)
  - Oesophageal food impaction [Recovering/Resolving]

NARRATIVE: CASE EVENT DATE: 20250601
